FAERS Safety Report 4589956-4 (Version None)
Quarter: 2005Q1

REPORT INFORMATION
  Report Type: 
  Country: None (occurrence: None)
  Receive Date: 20050125
  Receipt Date: 20040907
  Transmission Date: 20050727
  Serious: No
  Sender: FDA-Public Use
  Company Number: USA040771811

PATIENT
  Age: 72 Year
  Sex: Female
  Weight: 55 kg

DRUGS (9)
  1. FORTEO [Suspect]
     Indication: OSTEOPOROSIS
     Dates: start: 20040511
  2. NORVASC [Concomitant]
  3. SYNTHROID [Concomitant]
  4. LIPITOR [Concomitant]
  5. ASPIRIN [Concomitant]
  6. VITAMIN E [Concomitant]
  7. VITAMIN B COMPLEX CAP [Concomitant]
  8. CALCIUM AND VITAMIN D [Concomitant]
  9. GLUCOSAMINE CHONDROITIN [Concomitant]

REACTIONS (2)
  - INJECTION SITE ERYTHEMA [None]
  - INJECTION SITE HAEMORRHAGE [None]
